FAERS Safety Report 17506865 (Version 1)
Quarter: 2020Q1

REPORT INFORMATION
  Report Type: Spontaneous
  Country: US (occurrence: US)
  Receive Date: 20200306
  Receipt Date: 20200306
  Transmission Date: 20200409
  Serious: No
  Sender: FDA-Public Use
  Company Number: US-AUROBINDO-AUR-APL-2019-105560

PATIENT
  Age: 14 Year
  Sex: Female

DRUGS (1)
  1. METFORMIN HYDROCHLORIDE TABLETS USP 500 MG [Suspect]
     Active Substance: METFORMIN HYDROCHLORIDE
     Indication: DIABETES MELLITUS
     Dosage: UNK UNK, TWO TIMES A DAY AFTER MEALS
     Route: 065
     Dates: start: 20191128

REACTIONS (5)
  - Headache [Unknown]
  - Wrong technique in product usage process [Unknown]
  - Product contamination physical [Unknown]
  - Abdominal pain [Unknown]
  - Product use complaint [Unknown]

NARRATIVE: CASE EVENT DATE: 20191128
